FAERS Safety Report 5831368-7 (Version None)
Quarter: 2008Q3

REPORT INFORMATION
  Report Type: 
  Country: None (occurrence: None)
  Receive Date: 20080801
  Receipt Date: 20080725
  Transmission Date: 20090109
  Serious: Yes (Hospitalization)
  Sender: FDA-Public Use
  Company Number: US-BOEHRINGER INGELHEIM GMBH, GERMANY-2008-BP-08666BP

PATIENT
  Age: 66 Year
  Sex: Male

DRUGS (5)
  1. FLOMAX [Suspect]
     Indication: URINE FLOW DECREASED
  2. FLOMAX [Suspect]
     Indication: PROSTATIC DISORDER
  3. DIOVAN [Concomitant]
  4. PROVACHOL [Concomitant]
  5. WARFARIN SODIUM [Concomitant]

REACTIONS (6)
  - CEREBROVASCULAR ACCIDENT [None]
  - DYSPNOEA [None]
  - FEELING ABNORMAL [None]
  - PLEURISY [None]
  - PNEUMONIA PRIMARY ATYPICAL [None]
  - PULMONARY EMBOLISM [None]
